FAERS Safety Report 8132016-6 (Version None)
Quarter: 2012Q1

REPORT INFORMATION
  Report Type: 
  Country: None (occurrence: None)
  Receive Date: 20120213
  Receipt Date: 20120203
  Transmission Date: 20120608
  Serious: Yes (Death)
  Sender: FDA-Public Use
  Company Number: US-MYLANLABS-2012S1002699

PATIENT
  Age: 55 Year
  Sex: Male
  Weight: 103.42 kg

DRUGS (2)
  1. HYDROCODONE [Suspect]
  2. FENTANYL [Suspect]

REACTIONS (1)
  - TOXICITY TO VARIOUS AGENTS [None]
